FAERS Safety Report 9979526 (Version 2)
Quarter: 2014Q1

REPORT INFORMATION
  Report Type: Report from Study
  Country: US (occurrence: US)
  Receive Date: 20140306
  Receipt Date: 20140306
  Transmission Date: 20141002
  Serious: No
  Sender: FDA-Public Use
  Company Number: US-ABBVIE-13P-163-1132242-00

PATIENT
  Age: 48 Year
  Sex: Female
  Weight: 98.06 kg

DRUGS (14)
  1. HUMIRA [Suspect]
     Indication: CROHN^S DISEASE
     Dosage: LOADING DOSE
     Route: 058
     Dates: start: 20130729, end: 20130920
  2. HUMALOG [Concomitant]
     Indication: PRODUCT USED FOR UNKNOWN INDICATION
     Dosage: SLIDING SCALE
  3. ASACOL [Concomitant]
     Indication: CROHN^S DISEASE
  4. GLYBURIDE [Concomitant]
     Indication: DIABETES MELLITUS
  5. GLUCOPHAGE [Concomitant]
     Indication: DIABETES MELLITUS
  6. CELEXA [Concomitant]
     Indication: DEPRESSION
  7. OMEPRAZOLE [Concomitant]
     Indication: GASTROOESOPHAGEAL REFLUX DISEASE
  8. DIAZEPAM [Concomitant]
     Indication: ANXIETY
  9. IRON [Concomitant]
     Indication: MINERAL SUPPLEMENTATION
  10. VITAMIN D [Concomitant]
     Indication: VITAMIN SUPPLEMENTATION
  11. SIMETHICONE [Concomitant]
     Indication: FLATULENCE
  12. OXYCODONE [Concomitant]
     Indication: PAIN
     Dosage: 10 MG EVERY 8 HOURS USUALLY TAKES A HALF OF ONE IN MORNING AND HALF OF ONE IN EVENING
  13. PRINIVIL [Concomitant]
     Indication: PRODUCT USED FOR UNKNOWN INDICATION
  14. HYDROCHLOROTHIAZIDE [Concomitant]
     Indication: PRODUCT USED FOR UNKNOWN INDICATION

REACTIONS (5)
  - Inguinal mass [Not Recovered/Not Resolved]
  - Groin pain [Not Recovered/Not Resolved]
  - Fatigue [Not Recovered/Not Resolved]
  - Headache [Not Recovered/Not Resolved]
  - Optic neuritis [Recovering/Resolving]
